FAERS Safety Report 13693325 (Version 1)
Quarter: 2017Q2

REPORT INFORMATION
  Report Type: Spontaneous
  Country: US (occurrence: US)
  Receive Date: 20170627
  Receipt Date: 20170627
  Transmission Date: 20170830
  Serious: Yes (Other)
  Sender: FDA-Public Use
  Company Number: US-DEXPHARM-20170896

PATIENT
  Age: 72 Year
  Sex: Female

DRUGS (1)
  1. ISOSORBIDE MONONITRATE 60MG EXTENDED RELEASE [Suspect]
     Active Substance: ISOSORBIDE MONONITRATE

REACTIONS (3)
  - Skin ulcer [None]
  - Pruritus [Unknown]
  - Erythema [None]
